FAERS Safety Report 5809981-2 (Version None)
Quarter: 2008Q3

REPORT INFORMATION
  Report Type: 
  Country: None (occurrence: None)
  Receive Date: 20080715
  Receipt Date: 20080711
  Transmission Date: 20090109
  Serious: Yes (Hospitalization)
  Sender: FDA-Public Use
  Company Number: DE-MERCK-0807DEU00054

PATIENT
  Sex: Male

DRUGS (1)
  1. VYTORIN [Suspect]
     Route: 048
     Dates: start: 20020101

REACTIONS (2)
  - MOBILITY DECREASED [None]
  - QUALITY OF LIFE DECREASED [None]
